FAERS Safety Report 14532431 (Version 1)
Quarter: 2018Q1

REPORT INFORMATION
  Report Type: Report from Study
  Country: FR (occurrence: FR)
  Receive Date: 20180214
  Receipt Date: 20180214
  Transmission Date: 20180509
  Serious: Yes (Death, Other)
  Sender: FDA-Public Use
  Company Number: FR-GILEAD-2018-0319960

PATIENT
  Age: 62 Year
  Sex: Male
  Weight: 61 kg

DRUGS (7)
  1. AUGMENTIN [Concomitant]
     Active Substance: AMOXICILLIN\CLAVULANATE POTASSIUM
     Indication: DYSPNOEA
     Dosage: UNK
     Dates: start: 20171228
  2. EXOMUC [Concomitant]
     Active Substance: ACETYLCYSTEINE
     Indication: BRONCHITIS
     Dosage: UNK
     Dates: end: 20180104
  3. SOFOSBUVIR W/VELPATASVIR [Suspect]
     Active Substance: SOFOSBUVIR\VELPATASVIR
     Indication: CHRONIC HEPATITIS C
     Dosage: UNK
     Route: 065
     Dates: start: 20171110, end: 20171230
  4. SPIRIVA [Concomitant]
     Active Substance: TIOTROPIUM BROMIDE MONOHYDRATE
     Indication: CHRONIC OBSTRUCTIVE PULMONARY DISEASE
     Dosage: 1 DF, QD
     Route: 055
     Dates: end: 20180104
  5. OXYGEN. [Concomitant]
     Active Substance: OXYGEN
     Indication: CHRONIC OBSTRUCTIVE PULMONARY DISEASE
     Dosage: UNK
     Dates: end: 20180104
  6. OXYGEN. [Concomitant]
     Active Substance: OXYGEN
     Indication: DYSPNOEA
  7. TERBUHALE [Concomitant]
     Indication: CHRONIC OBSTRUCTIVE PULMONARY DISEASE
     Dosage: UNK
     Dates: end: 20180104

REACTIONS (2)
  - Acute respiratory failure [Fatal]
  - Metapneumovirus infection [Fatal]

NARRATIVE: CASE EVENT DATE: 201712
